FAERS Safety Report 11120679 (Version 1)
Quarter: 2015Q2

REPORT INFORMATION
  Report Type: Spontaneous
  Country: US (occurrence: US)
  Receive Date: 20150519
  Receipt Date: 20150519
  Transmission Date: 20150821
  Serious: Yes (Other)
  Sender: FDA-Public Use
  Company Number: US-BEH-2014041777

PATIENT
  Age: 4 Year
  Sex: Male

DRUGS (3)
  1. IV IMMUNOGLOBULIN [Suspect]
     Active Substance: HUMAN IMMUNOGLOBULIN G
     Indication: EOSINOPHILIC FASCIITIS
  2. IV IMMUNOGLOBULIN [Suspect]
     Active Substance: HUMAN IMMUNOGLOBULIN G
     Indication: MYOPATHY
  3. IV IMMUNOGLOBULIN [Suspect]
     Active Substance: HUMAN IMMUNOGLOBULIN G
     Indication: MORPHOEA

REACTIONS (4)
  - Morphoea [Recovered/Resolved]
  - Eosinophilic fasciitis [Recovered/Resolved]
  - Drug ineffective for unapproved indication [Recovered/Resolved]
  - Myopathy [Recovered/Resolved]
